FAERS Safety Report 8271514-1 (Version None)
Quarter: 2012Q1

REPORT INFORMATION
  Report Type: 
  Country: None (occurrence: None)
  Receive Date: 20120327
  Receipt Date: 20100325
  Transmission Date: 20120608
  Serious: Yes (Hospitalization)
  Sender: FDA-Public Use
  Company Number: PHEH2010US03332

PATIENT
  Sex: Female
  Weight: 74.8 kg

DRUGS (10)
  1. XANAX [Concomitant]
  2. LASIX [Concomitant]
  3. EFFEXOR [Concomitant]
  4. GLEEVEC [Suspect]
     Indication: CHRONIC MYELOID LEUKAEMIA
     Dosage: 100 MG, QD, ORAL
     Route: 048
     Dates: start: 20090201
  5. ZOFRAN [Concomitant]
  6. PHENERGAN ^AVENTIS PHARMA^ (PROMETHAZINE HYDROCHLORIDE) [Concomitant]
  7. POTASSIUM CHLORIDE [Concomitant]
  8. VALIUM [Concomitant]
  9. TRAZODONE HCL [Concomitant]
  10. PROTONIX [Concomitant]

REACTIONS (5)
  - VOMITING [None]
  - BLOOD POTASSIUM DECREASED [None]
  - NAUSEA [None]
  - BLOOD MAGNESIUM DECREASED [None]
  - VITAMIN B12 DECREASED [None]
